FAERS Safety Report 22343009 (Version 1)
Quarter: 2023Q2

REPORT INFORMATION
  Report Type: Spontaneous
  Country: US (occurrence: US)
  Receive Date: 20230519
  Receipt Date: 20230519
  Transmission Date: 20230721
  Serious: Yes (Other)
  Sender: FDA-Public Use
  Company Number: US-SANOFI-01617256

PATIENT
  Sex: Female

DRUGS (1)
  1. LANTUS [Suspect]
     Active Substance: INSULIN GLARGINE
     Dosage: UNK

REACTIONS (6)
  - Neuropathy peripheral [Unknown]
  - Gait disturbance [Unknown]
  - Photopsia [Unknown]
  - Eye injury [Unknown]
  - Asthenia [Unknown]
  - Epiretinal membrane [Unknown]
